FAERS Safety Report 4358569-1 (Version None)
Quarter: 2004Q2

REPORT INFORMATION
  Report Type: 
  Country: None (occurrence: None)
  Receive Date: 20040512
  Receipt Date: 20040427
  Transmission Date: 20050107
  Serious: Yes (Hospitalization)
  Sender: FDA-Public Use
  Company Number: 2004IM000251

PATIENT
  Age: 74 Year
  Sex: Male

DRUGS (4)
  1. ADVAFERON (A643_INTERFERON ALFACON-1) [Suspect]
     Indication: HEPATITIS C
     Dosage: 18 MU; QOD; SUBCUTANEOUS
     Route: 058
     Dates: start: 20020308
  2. NIFEDIPINE [Concomitant]
  3. TRANDOLAPRIL [Concomitant]
  4. REBAMIPINE [Concomitant]

REACTIONS (3)
  - PLATELET COUNT DECREASED [None]
  - RHEUMATOID ARTHRITIS [None]
  - SYSTEMIC LUPUS ERYTHEMATOSUS [None]
